FAERS Safety Report 4505543-8 (Version None)
Quarter: 2004Q4

REPORT INFORMATION
  Report Type: 
  Country: None (occurrence: None)
  Receive Date: 20041119
  Receipt Date: 20040820
  Transmission Date: 20050328
  Serious: No
  Sender: FDA-Public Use
  Company Number: US-GLAXOSMITHKLINE-A0522908A

PATIENT
  Sex: Male

DRUGS (1)
  1. AVODART [Suspect]
     Indication: ILL-DEFINED DISORDER
     Route: 065

REACTIONS (2)
  - DRUG INEFFECTIVE [None]
  - GYNAECOMASTIA [None]
